FAERS Safety Report 16062277 (Version 3)
Quarter: 2019Q2

REPORT INFORMATION
  Report Type: Spontaneous
  Country: IN (occurrence: IN)
  Receive Date: 20190312
  Receipt Date: 20190425
  Transmission Date: 20190711
  Serious: Yes (Other)
  Sender: FDA-Public Use
  Company Number: IN-PFIZER INC-2019089912

PATIENT
  Age: 83 Year
  Sex: Female

DRUGS (1)
  1. AROMASIN [Suspect]
     Active Substance: EXEMESTANE
     Indication: BREAST CANCER FEMALE
     Dosage: 25 MG, UNK
     Route: 048
     Dates: start: 20190207

REACTIONS (4)
  - Fall [Unknown]
  - Gait disturbance [Unknown]
  - Lower limb fracture [Unknown]
  - Balance disorder [Unknown]

NARRATIVE: CASE EVENT DATE: 20190302
